FAERS Safety Report 16943529 (Version 2)
Quarter: 2019Q4

REPORT INFORMATION
  Report Type: Report from Study
  Country: FR (occurrence: FR)
  Receive Date: 20191022
  Receipt Date: 20191107
  Transmission Date: 20200122
  Serious: Yes (Death, Other)
  Sender: FDA-Public Use
  Company Number: FR-BRISTOL-MYERS SQUIBB COMPANY-BMS-2019-098697

PATIENT

DRUGS (1)
  1. NIVOLUMAB [Suspect]
     Active Substance: NIVOLUMAB
     Indication: LUNG NEOPLASM MALIGNANT
     Dosage: 300 MILLIGRAM, EVERY 15 DAYS
     Route: 042
     Dates: start: 20171020, end: 20180202

REACTIONS (2)
  - Malignant neoplasm progression [Fatal]
  - Left ventricular failure [Unknown]

NARRATIVE: CASE EVENT DATE: 20180201
